FAERS Safety Report 15624855 (Version 5)
Quarter: 2020Q3

REPORT INFORMATION
  Report Type: Report from Study
  Country: FR (occurrence: FR)
  Receive Date: 20181116
  Receipt Date: 20200829
  Transmission Date: 20201102
  Serious: Yes (Life-Threatening, Hospitalization, Other)
  Sender: FDA-Public Use
  Company Number: FR-AUROBINDO-AUR-APL-2018-055325

PATIENT
  Age: 62 Year
  Sex: Male
  Weight: 112 kg

DRUGS (13)
  1. ATORVASTATIN [Suspect]
     Active Substance: ATORVASTATIN
     Indication: PRODUCT USED FOR UNKNOWN INDICATION
     Dosage: 400 MILLIGRAM, TOTAL
     Route: 048
  2. BISOPROLOL TABLETS [Suspect]
     Active Substance: BISOPROLOL
     Dosage: 502 MILLIGRAM, UNK
     Route: 048
  3. APIXABAN [Suspect]
     Active Substance: APIXABAN
     Indication: ANTICOAGULANT THERAPY
     Dosage: 230 MILLIGRAM IN TOTAL 200 MG (40 TABLETS OF 5 MG)
     Route: 048
     Dates: start: 20151222, end: 20151222
  4. ACETYLSALICYLIC ACID;CAFFEINE;PARACETAMOL [Suspect]
     Active Substance: ACETAMINOPHEN\ASPIRIN\CAFFEINE
     Indication: PRODUCT USED FOR UNKNOWN INDICATION
     Dosage: 4 GRAM, TOTAL
     Route: 048
  5. HYDROCHLOROTHIAZIDE. [Suspect]
     Active Substance: HYDROCHLOROTHIAZIDE
     Indication: PRODUCT USED FOR UNKNOWN INDICATION
     Dosage: 750 MILLIGRAM, TOTAL
     Route: 048
  6. PARACETAMOL [Suspect]
     Active Substance: ACETAMINOPHEN
     Indication: PRODUCT USED FOR UNKNOWN INDICATION
     Dosage: 4 GRAM (4 G, SINGLE),TOTAL
     Route: 048
     Dates: start: 20151222, end: 20151222
  7. AMLODIPINE [Suspect]
     Active Substance: AMLODIPINE BESYLATE
     Indication: PRODUCT USED FOR UNKNOWN INDICATION
     Dosage: 100 MILLIGRAM IN TOTAL 100 MG (10 TABLETS OF 10 MG)
     Route: 048
     Dates: start: 20151222, end: 20151222
  8. KALEROID [Suspect]
     Active Substance: POTASSIUM CHLORIDE
     Indication: PRODUCT USED FOR UNKNOWN INDICATION
     Dosage: 20 GRAM IN TOTAL 20000 MG (20 TABLETS OF 1000 MG)
     Route: 048
     Dates: start: 20151222, end: 20151222
  9. POTASSIUM [Suspect]
     Active Substance: POTASSIUM
     Indication: PRODUCT USED FOR UNKNOWN INDICATION
     Dosage: 20 MILLIGRAM, TOTAL
     Route: 048
  10. TAHOR [Suspect]
     Active Substance: ATORVASTATIN CALCIUM
     Indication: PRODUCT USED FOR UNKNOWN INDICATION
     Dosage: 400 MILLIGRAM IN TOTAL 400 MG (20 TABLETS OF 20 MG)
     Route: 048
     Dates: start: 20151222, end: 20151222
  11. ESIDREX [Suspect]
     Active Substance: HYDROCHLOROTHIAZIDE
     Indication: PRODUCT USED FOR UNKNOWN INDICATION
     Dosage: 750 MILLIGRAM IN  TOTAL 750 MG (30 TABLETS OF 25 MG)
     Route: 048
     Dates: start: 20151222, end: 20151222
  12. BISOPROLOL TABLETS [Suspect]
     Active Substance: BISOPROLOL
     Indication: PRODUCT USED FOR UNKNOWN INDICATION
     Dosage: 520 MILLIGRAM IN TOTAL, (500 MG (50 TABLETS OF 10 MG))
     Route: 048
     Dates: start: 20151222, end: 20151222
  13. CLOMIPRAMINE [Suspect]
     Active Substance: CLOMIPRAMINE
     Indication: PRODUCT USED FOR UNKNOWN INDICATION
     Dosage: 600 MG IN TOTAL(24 TABLETS OF 25 MG)
     Route: 048
     Dates: start: 20151222, end: 20151222

REACTIONS (9)
  - Cardiogenic shock [Recovered/Resolved]
  - Poisoning deliberate [Recovered/Resolved]
  - Intentional overdose [Recovered/Resolved]
  - Shock [Recovered/Resolved]
  - Hypovolaemic shock [Unknown]
  - Drug level increased [Recovered/Resolved]
  - Hypotension [Recovered/Resolved]
  - Hypokalaemia [Recovered/Resolved]
  - Toxicity to various agents [Recovered/Resolved]

NARRATIVE: CASE EVENT DATE: 20151222
